FAERS Safety Report 7859988-9 (Version None)
Quarter: 2011Q4

REPORT INFORMATION
  Report Type: 
  Country: None (occurrence: None)
  Receive Date: 20111026
  Receipt Date: 20111026
  Transmission Date: 20120403
  Serious: No
  Sender: FDA-Public Use
  Company Number: None

PATIENT
  Age: 56 Year
  Sex: Female

DRUGS (6)
  1. REVLIMID [Suspect]
     Indication: MULTIPLE MYELOMA
     Dosage: 10MG QDX21D/28D ORALLY
     Route: 048
     Dates: start: 20100701, end: 20111001
  2. PREVACID [Concomitant]
  3. ZOVIRAX [Concomitant]
  4. DITROPAN [Concomitant]
  5. PREDNISONE [Concomitant]
  6. ENTOCORT EC [Concomitant]

REACTIONS (2)
  - NEUROPATHY PERIPHERAL [None]
  - BONE MARROW TRANSPLANT [None]
